FAERS Safety Report 15291569 (Version 1)
Quarter: 2018Q3

REPORT INFORMATION
  Report Type: Report from Study
  Country: US (occurrence: US)
  Receive Date: 20180817
  Receipt Date: 20180817
  Transmission Date: 20181010
  Serious: Yes (Hospitalization)
  Sender: FDA-Public Use
  Company Number: US-BIOGEN-2018BI00621036

PATIENT
  Sex: Male

DRUGS (2)
  1. ZINBRYTA [Suspect]
     Active Substance: DACLIZUMAB
     Indication: MULTIPLE SCLEROSIS
     Route: 058
  2. ZINBRYTA [Suspect]
     Active Substance: DACLIZUMAB
     Route: 065
     Dates: end: 201805

REACTIONS (1)
  - Multiple sclerosis relapse [Unknown]
